FAERS Safety Report 24357079 (Version 1)
Quarter: 2024Q3

REPORT INFORMATION
  Report Type: Spontaneous
  Country: US (occurrence: US)
  Receive Date: 20240924
  Receipt Date: 20240924
  Transmission Date: 20241017
  Serious: Yes (Other)
  Sender: ORGANON
  Company Number: US-ORGANON-O2409USA001691

PATIENT
  Age: 41 Year
  Sex: Female
  Weight: 114.29 kg

DRUGS (1)
  1. NEXPLANON [Suspect]
     Active Substance: ETONOGESTREL
     Indication: Contraception
     Dosage: 1 IMPLANT
     Route: 059
     Dates: start: 20240918

REACTIONS (2)
  - Device expulsion [Not Recovered/Not Resolved]
  - Implant site haemorrhage [Unknown]

NARRATIVE: CASE EVENT DATE: 20240919
